FAERS Safety Report 20160352 (Version 1)
Quarter: 2021Q4

REPORT INFORMATION
  Report Type: Spontaneous
  Country: US (occurrence: None)
  Receive Date: 20211208
  Receipt Date: 20211208
  Transmission Date: 20220304
  Serious: No
  Sender: FDA-Public Use
  Company Number: 2021A824287

PATIENT
  Age: 31709 Day

DRUGS (5)
  1. BRILINTA [Suspect]
     Active Substance: TICAGRELOR
     Indication: Blood cholesterol
     Route: 048
     Dates: start: 20211011
  2. ASPIRIN [Concomitant]
     Active Substance: ASPIRIN
     Dosage: TWO TIMES A DAY
  3. EPIPEN [Concomitant]
     Active Substance: EPINEPHRINE
  4. PRALUNT [Concomitant]
  5. VALSARTAN [Concomitant]
     Active Substance: VALSARTAN

REACTIONS (1)
  - Urine abnormality [Not Recovered/Not Resolved]

NARRATIVE: CASE EVENT DATE: 20211011
